FAERS Safety Report 14950187 (Version 1)
Quarter: 2018Q2

REPORT INFORMATION
  Report Type: Report from Study
  Country: ES (occurrence: ES)
  Receive Date: 20180530
  Receipt Date: 20180530
  Transmission Date: 20180711
  Serious: Yes (Other)
  Sender: FDA-Public Use
  Company Number: ES-BRISTOL-MYERS SQUIBB COMPANY-BMS-2018-046103

PATIENT
  Age: 77 Year
  Sex: Male

DRUGS (1)
  1. ABATACEPT [Suspect]
     Active Substance: ABATACEPT
     Indication: RHEUMATOID ARTHRITIS
     Dosage: 750 MG, AT AN INTERVAL OF 5 WEEKS
     Route: 042
     Dates: start: 20150109

REACTIONS (2)
  - Off label use [Unknown]
  - Osteitis [Recovering/Resolving]

NARRATIVE: CASE EVENT DATE: 20180417
